FAERS Safety Report 6737637-0 (Version None)
Quarter: 2010Q2

REPORT INFORMATION
  Report Type: 
  Country: None (occurrence: None)
  Receive Date: 20100519
  Receipt Date: 20100506
  Transmission Date: 20101027
  Serious: Yes (Other)
  Sender: FDA-Public Use
  Company Number: JP-1181889

PATIENT
  Sex: Female

DRUGS (2)
  1. AZOPT [Suspect]
     Indication: GLAUCOMA
     Dosage: OPHTHALMIC
     Route: 047
     Dates: start: 20100409, end: 20100430
  2. TAPROS (TAFLUPROST) [Concomitant]

REACTIONS (3)
  - ABNORMAL SENSATION IN EYE [None]
  - DEPRESSION [None]
  - INSOMNIA [None]
